FAERS Safety Report 8369033-7 (Version None)
Quarter: 2012Q2

REPORT INFORMATION
  Report Type: 
  Country: None (occurrence: None)
  Receive Date: 20120516
  Receipt Date: 20120430
  Transmission Date: 20120825
  Serious: Yes (Other)
  Sender: FDA-Public Use
  Company Number: 1231456

PATIENT
  Age: 48 Year
  Sex: Female
  Weight: 31.7518 kg

DRUGS (10)
  1. GRANISETRON [Suspect]
     Indication: PRODUCT USED FOR UNKNOWN INDICATION
     Dosage: 1 MG MILLIGRAM(S), 1 DAY, ORAL
     Route: 048
  2. DOMPERIDONE [Suspect]
     Indication: PRODUCT USED FOR UNKNOWN INDICATION
     Dosage: 20 MG MILLIGRAM(S), 1 DAY, ORAL
     Route: 048
  3. RANITIDINE [Suspect]
     Indication: PRODUCT USED FOR UNKNOWN INDICATION
     Dosage: 50MG MILLIGRAM(S), INTRAVENOUS
     Route: 042
  4. DOCUSATE [Concomitant]
  5. DEXAMETHASONE [Suspect]
     Indication: PRODUCT USED FOR UNKNOWN INDICATION
     Dosage: 20 MG MILLIGRAM(S), INTRAVENOUS
     Route: 042
  6. DEXAMETHASONE [Suspect]
     Indication: PRODUCT USED FOR UNKNOWN INDICATION
     Dosage: 4 MG MILLIGRAM(S), 1 DAY, ORAL
     Route: 048
  7. NEULASTA [Suspect]
     Indication: CHEMOTHERAPY
     Dosage: 6 MG MILLIGRAM(S), SUBCUTANEOUS
     Route: 058
  8. BIOTENE [Concomitant]
  9. CHLORPHENIRAMINE TAB [Suspect]
     Indication: PRODUCT USED FOR UNKNOWN INDICATION
     Dosage: 10 MG (MILLIGRAM(S), INTRAVENOUS
     Route: 042
  10. PACLITAXEL [Suspect]
     Indication: BREAST CANCER
     Dosage: 315 MG MILLIGRAM(S), INTRAVENOUS
     Route: 042
     Dates: start: 20110524, end: 20110607

REACTIONS (8)
  - DYSPNOEA [None]
  - RESPIRATORY DEPTH DECREASED [None]
  - FATIGUE [None]
  - DISCOMFORT [None]
  - CHEST DISCOMFORT [None]
  - PRODUCT SUBSTITUTION ISSUE [None]
  - CHEST PAIN [None]
  - OBSTRUCTIVE AIRWAYS DISORDER [None]
